FAERS Safety Report 11237606 (Version 1)
Quarter: 2015Q3

REPORT INFORMATION
  Report Type: Spontaneous
  Country: US (occurrence: US)
  Receive Date: 20150703
  Receipt Date: 20150703
  Transmission Date: 20151125
  Serious: Yes (Other)
  Sender: FDA-Public Use
  Company Number: US-SUN PHARMACEUTICAL INDUSTRIES LTD-2015US-099832

PATIENT
  Sex: Female

DRUGS (1)
  1. LORATADINE AND PSEUDOEPHEDRINE [Suspect]
     Active Substance: LORATADINE\PSEUDOEPHEDRINE SULFATE
     Indication: HYPERSENSITIVITY
     Dosage: UNK
     Route: 065

REACTIONS (4)
  - Hallucination [Unknown]
  - Pruritus generalised [Unknown]
  - Rash pruritic [Recovering/Resolving]
  - Insomnia [Unknown]
